FAERS Safety Report 8132224-4 (Version None)
Quarter: 2012Q1

REPORT INFORMATION
  Report Type: 
  Country: None (occurrence: None)
  Receive Date: 20120208
  Receipt Date: 20120125
  Transmission Date: 20120608
  Serious: Yes (Life-Threatening, Hospitalization, Other)
  Sender: FDA-Public Use
  Company Number: 2012AR0049

PATIENT
  Age: 1 Year
  Sex: Female

DRUGS (1)
  1. ORFADIN [Suspect]
     Indication: TYROSINAEMIA
     Dosage: 1 MG/KG (1 MG/KG,1 IN 1 D)
     Dates: start: 20110701

REACTIONS (3)
  - CHOLESTASIS [None]
  - HEPATIC NEOPLASM MALIGNANT [None]
  - HAEMODYNAMIC INSTABILITY [None]
